FAERS Safety Report 6120774-1 (Version None)
Quarter: 2009Q1

REPORT INFORMATION
  Report Type: 
  Country: None (occurrence: None)
  Receive Date: 20090317
  Receipt Date: 20090311
  Transmission Date: 20090719
  Serious: Yes (Death)
  Sender: FDA-Public Use
  Company Number: DE-AVENTIS-200910699DE

PATIENT
  Age: 40 Year
  Sex: Female

DRUGS (6)
  1. CLEXANE [Suspect]
     Route: 058
     Dates: start: 20070708, end: 20070708
  2. BROMAZANIL [Suspect]
     Dosage: DOSE: 30X6
     Route: 048
     Dates: start: 20070708, end: 20070708
  3. DOXEPIN HCL [Suspect]
     Dosage: DOSE: 10X-50
     Route: 048
     Dates: start: 20070708, end: 20070708
  4. PARACETAMOL [Suspect]
     Dosage: DOSE: 20X500
     Route: 048
     Dates: start: 20070708, end: 20070708
  5. CARBON MONOXIDE [Suspect]
     Dosage: DOSE: NOT REPORTED
     Route: 055
     Dates: start: 20070708, end: 20070708
  6. MARCUMAR [Concomitant]
     Indication: THROMBOSIS PROPHYLAXIS
     Dosage: DOSE: NOT REPORTE
     Route: 048

REACTIONS (2)
  - DISSEMINATED INTRAVASCULAR COAGULATION [None]
  - INTENTIONAL OVERDOSE [None]
